FAERS Safety Report 6171406-8 (Version None)
Quarter: 2009Q2

REPORT INFORMATION
  Report Type: 
  Country: None (occurrence: None)
  Receive Date: 20090429
  Receipt Date: 20090417
  Transmission Date: 20091009
  Serious: Yes (Congenital Anomaly, Other)
  Sender: FDA-Public Use
  Company Number: US-PFIZER INC-2007095367

PATIENT
  Sex: Female
  Weight: 3.4 kg

DRUGS (11)
  1. ZOLOFT [Suspect]
     Route: 064
  2. PRILOSEC [Concomitant]
  3. ZANTAC [Concomitant]
  4. ELIDEL [Concomitant]
     Indication: ECZEMA
  5. HYDROCORTISONE [Concomitant]
  6. KEFLEX [Concomitant]
  7. PREVACID [Concomitant]
  8. SUDAFED 12 HOUR [Concomitant]
  9. TYLENOL [Concomitant]
  10. ZITHROMAX [Concomitant]
  11. AURALGAN [Concomitant]

REACTIONS (2)
  - DRUG EXPOSURE DURING PREGNANCY [None]
  - EBSTEIN'S ANOMALY [None]
